FAERS Safety Report 13842222 (Version 2)
Quarter: 2018Q1

REPORT INFORMATION
  Report Type: Report from Study
  Country: None (occurrence: CA)
  Receive Date: 20170807
  Receipt Date: 20180124
  Transmission Date: 20180508
  Serious: Yes (Other)
  Sender: FDA-Public Use
  Company Number: CA-ABBVIE-17K-028-2060403-00

PATIENT
  Age: 39 Year
  Sex: Male

DRUGS (1)
  1. HUMIRA [Suspect]
     Active Substance: ADALIMUMAB
     Indication: CROHN^S DISEASE
     Route: 058
     Dates: start: 20150811

REACTIONS (8)
  - Soft tissue injury [Recovering/Resolving]
  - Pain [Unknown]
  - Concussion [Recovering/Resolving]
  - Eye injury [Recovering/Resolving]
  - Ligament rupture [Recovering/Resolving]
  - Facial bones fracture [Recovering/Resolving]
  - Lumbar vertebral fracture [Recovering/Resolving]
  - Road traffic accident [Unknown]

NARRATIVE: CASE EVENT DATE: 20170701
